FAERS Safety Report 7761160-8 (Version None)
Quarter: 2011Q3

REPORT INFORMATION
  Report Type: 
  Country: None (occurrence: None)
  Receive Date: 20110920
  Receipt Date: 20110908
  Transmission Date: 20111222
  Serious: Yes (Hospitalization)
  Sender: FDA-Public Use
  Company Number: US-ELI_LILLY_AND_COMPANY-US201109002552

PATIENT
  Sex: Female

DRUGS (6)
  1. FENTANYL [Concomitant]
  2. PAROXETINE HCL [Concomitant]
  3. ACETAMINOPHEN AND HYDROCODONE BITARTRATE [Concomitant]
  4. DIAZEPAM [Concomitant]
  5. FORTEO [Suspect]
     Indication: OSTEOPOROSIS
     Dosage: 20 UG, QD
     Dates: start: 20110801
  6. ATENOLOL [Concomitant]

REACTIONS (2)
  - PAIN [None]
  - INTERVERTEBRAL DISC PROTRUSION [None]
